FAERS Safety Report 23810234 (Version 2)
Quarter: 2025Q2

REPORT INFORMATION
  Report Type: Spontaneous
  Country: JP (occurrence: JP)
  Receive Date: 20240502
  Receipt Date: 20250530
  Transmission Date: 20250717
  Serious: Yes (Death, Other)
  Sender: EISAI
  Company Number: JP-Eisai-202401131_DVG_P_1

PATIENT
  Age: 90 Year
  Sex: Male
  Weight: 52 kg

DRUGS (8)
  1. DAYVIGO [Suspect]
     Active Substance: LEMBOREXANT
     Indication: Insomnia
     Dates: start: 20240328, end: 20240416
  2. AMLODIPINE [Concomitant]
     Active Substance: AMLODIPINE BESYLATE
     Indication: Product used for unknown indication
     Dates: start: 20240328, end: 20240416
  3. TAMSULOSIN [Concomitant]
     Active Substance: TAMSULOSIN
     Indication: Product used for unknown indication
     Dates: start: 20240328, end: 20240416
  4. DISTIGMINE BROMIDE [Concomitant]
     Active Substance: DISTIGMINE BROMIDE
     Indication: Product used for unknown indication
     Dates: start: 20240328, end: 20240416
  5. DIETARY SUPPLEMENT\PROBIOTICS [Concomitant]
     Active Substance: DIETARY SUPPLEMENT\PROBIOTICS NOS
     Indication: Product used for unknown indication
     Dates: start: 20240328, end: 20240416
  6. ASPIRIN [Concomitant]
     Active Substance: ASPIRIN
     Indication: Product used for unknown indication
     Dates: start: 20240328, end: 20240416
  7. OLMESARTAN [Concomitant]
     Active Substance: OLMESARTAN
     Indication: Product used for unknown indication
     Dates: start: 20240328, end: 20240416
  8. LANSOPRAZOLE [Concomitant]
     Active Substance: LANSOPRAZOLE
     Indication: Product used for unknown indication
     Dates: start: 20240328, end: 20240416

REACTIONS (3)
  - Altered state of consciousness [Fatal]
  - Seizure [Unknown]
  - Renal impairment [Unknown]

NARRATIVE: CASE EVENT DATE: 20240416
